FAERS Safety Report 7920538-X (Version None)
Quarter: 2011Q4

REPORT INFORMATION
  Report Type: 
  Country: None (occurrence: None)
  Receive Date: 20111117
  Receipt Date: 20111111
  Transmission Date: 20120403
  Serious: Yes (Other)
  Sender: FDA-Public Use
  Company Number: PHEH2011US03699

PATIENT
  Sex: Female

DRUGS (11)
  1. FLUDROCORTISONE ACETATE [Concomitant]
     Dosage: 0.1 MG, UNK
  2. PRIMIDONE [Concomitant]
     Indication: TREMOR
     Dosage: UNK UKN, UNK
  3. VITAMIN D [Concomitant]
     Dosage: UNK UKN, UNK
  4. PREDNISONE TAB [Concomitant]
     Dosage: 2.5 MG, QD
  5. RECLAST [Suspect]
     Indication: OSTEOPOROSIS
     Dosage: 5 MG, UNK (YEARLY)
     Route: 042
     Dates: start: 20110520
  6. EXTRA STRENGTH TYLENOL PM [Concomitant]
     Dosage: UNK UKN, UNK
  7. VITAMIN E [Concomitant]
     Dosage: UNK UKN, UNK
  8. VITAMIN TAB [Concomitant]
     Dosage: UNK UKN, UNK
  9. METOPROLOL TARTRATE [Concomitant]
     Dosage: UNK UKN, UNK
  10. CALCIUM [Concomitant]
     Dosage: UNK UKN, UNK
  11. OMEPRAZOLE [Concomitant]
     Dosage: 20 MG, UNK

REACTIONS (9)
  - ALOPECIA [None]
  - ARTHRALGIA [None]
  - FALL [None]
  - MUSCULAR WEAKNESS [None]
  - FEELING ABNORMAL [None]
  - INSOMNIA [None]
  - GROIN PAIN [None]
  - TREMOR [None]
  - WEIGHT DECREASED [None]
